FAERS Safety Report 8231573-9 (Version None)
Quarter: 2012Q1

REPORT INFORMATION
  Report Type: 
  Country: None (occurrence: None)
  Receive Date: 20120320
  Receipt Date: 20120305
  Transmission Date: 20120608
  Serious: Yes (Hospitalization)
  Sender: FDA-Public Use
  Company Number: CN-007979

PATIENT
  Age: 15 Year
  Sex: Female

DRUGS (1)
  1. SOMATROPIN RDNA [Suspect]
     Indication: GROWTH HORMONE DEFICIENCY
     Dosage: 2-3 U/DAY.
     Dates: start: 20090201, end: 20100701

REACTIONS (3)
  - GAZE PALSY [None]
  - YOLK SAC TUMOUR SITE UNSPECIFIED [None]
  - HYDROCEPHALUS [None]
